FAERS Safety Report 10365599 (Version 2)
Quarter: 2014Q3

REPORT INFORMATION
  Report Type: Spontaneous
  Country: IT (occurrence: IT)
  Receive Date: 20140806
  Receipt Date: 20140822
  Transmission Date: 20150326
  Serious: Yes (Other)
  Sender: FDA-Public Use
  Company Number: IT-WATSON-2014-16876

PATIENT
  Age: 25 Year
  Sex: Female

DRUGS (1)
  1. METFORMIN (UNKNOWN) [Suspect]
     Active Substance: METFORMIN HYDROCHLORIDE
     Indication: DIABETES MELLITUS
     Dosage: 500 MG, DAILY
     Route: 048
     Dates: start: 20140603, end: 20140604

REACTIONS (7)
  - Erythema [Recovered/Resolved]
  - Diarrhoea [Recovered/Resolved]
  - Blood glucose increased [Recovered/Resolved]
  - Vertigo [Recovered/Resolved]
  - Dizziness [Recovered/Resolved]
  - Drug ineffective [Recovered/Resolved]
  - Vomiting [Recovered/Resolved]

NARRATIVE: CASE EVENT DATE: 20140604
